FAERS Safety Report 25123725 (Version 1)
Quarter: 2025Q1

REPORT INFORMATION
  Report Type: Spontaneous
  Country: US (occurrence: US)
  Receive Date: 20250326
  Receipt Date: 20250326
  Transmission Date: 20250408
  Serious: No
  Sender: B BRAUN
  Company Number: US-B.Braun Medical Inc.-2173699

PATIENT
  Age: 72 Year
  Sex: Male

DRUGS (2)
  1. CEFOXITIN AND DEXTROSE [Suspect]
     Active Substance: CEFOXITIN SODIUM
  2. TIGECYCLINE [Suspect]
     Active Substance: TIGECYCLINE

REACTIONS (1)
  - Gastrointestinal disorder [Unknown]
